FAERS Safety Report 8447191 (Version 2)
Quarter: 2014Q1

REPORT INFORMATION
  Report Type: Report from Study
  Country: US (occurrence: US)
  Receive Date: 20120308
  Receipt Date: 20140203
  Transmission Date: 20141002
  Serious: Yes (Other)
  Sender: FDA-Public Use
  Company Number: US-ASTELLAS-2012US002473

PATIENT
  Sex: 0

DRUGS (3)
  1. ERLOTINIB TABLET [Suspect]
     Indication: RECTAL ADENOCARCINOMA
     Dosage: 50 MG, WEEKS 1-3, CYCLIC
     Route: 048
  2. BEVACIZUMAB [Suspect]
     Indication: RECTAL ADENOCARCINOMA
     Dosage: 5 MG/KG, Q2W
     Route: 065
  3. CAPECITABINE [Suspect]
     Indication: RECTAL ADENOCARCINOMA
     Dosage: 1300 MG/M2, UID/QD
     Route: 065

REACTIONS (2)
  - Off label use [Unknown]
  - Hypertension [Unknown]
